FAERS Safety Report 9802755 (Version 1)
Quarter: 2014Q1

REPORT INFORMATION
  Report Type: Spontaneous
  Country: CA (occurrence: CA)
  Receive Date: 20140108
  Receipt Date: 20140108
  Transmission Date: 20141002
  Serious: Yes (Hospitalization, Other)
  Sender: FDA-Public Use
  Company Number: CA-AMGEN-CANSP2014000746

PATIENT
  Age: 57 Year
  Sex: Male

DRUGS (14)
  1. ENBREL [Suspect]
     Indication: PRODUCT USED FOR UNKNOWN INDICATION
     Dosage: UNK
     Route: 065
  2. ACTEMRA [Suspect]
     Indication: RHEUMATOID ARTHRITIS
     Dosage: 640 MG, Q4WK
     Route: 065
     Dates: start: 20130212, end: 20130212
  3. PLAQUENIL                          /00072602/ [Concomitant]
     Dosage: UNK
     Dates: start: 1997, end: 2001
  4. PREDNISONE [Concomitant]
  5. SENNOSIDE                          /00571901/ [Concomitant]
  6. DOCUSATE [Concomitant]
  7. CYTOTEC [Concomitant]
  8. LYRICA [Concomitant]
  9. NAPROSYN                           /00256201/ [Concomitant]
  10. CYCLOPHOSPHAMIDE [Concomitant]
  11. CALCIUM [Concomitant]
  12. VITAMIN D                          /00107901/ [Concomitant]
  13. RISEDRONATE [Concomitant]
  14. SULFATRIM                          /00086101/ [Concomitant]

REACTIONS (2)
  - Investigation [Unknown]
  - Rheumatoid vasculitis [Unknown]
